FAERS Safety Report 11057198 (Version 1)
Quarter: 2015Q2

REPORT INFORMATION
  Report Type: Spontaneous
  Country: US (occurrence: None)
  Receive Date: 20150420
  Receipt Date: 20150420
  Transmission Date: 20150821
  Serious: Yes (Hospitalization)
  Sender: FDA-Public Use
  Company Number: AEGR001211

PATIENT
  Age: 67 Year
  Sex: Female

DRUGS (5)
  1. JUXTAPID [Suspect]
     Active Substance: LOMITAPIDE MESYLATE
     Indication: TYPE IIA HYPERLIPIDAEMIA
     Route: 048
     Dates: start: 20140407, end: 20140806
  2. TYLENOL [Concomitant]
     Active Substance: ACETAMINOPHEN
  3. BABY ASPIRIN (ACETYLSALICYLIC ACID) [Concomitant]
     Active Substance: ASPIRIN
  4. VITAMIN E (TICOPHERYL ACETATE) [Concomitant]
  5. OMEGA 3-6-9 (FISH OIL, TOCOPHEROL) [Concomitant]

REACTIONS (7)
  - Fatigue [None]
  - Abdominal discomfort [None]
  - Headache [None]
  - Myalgia [None]
  - Pain [None]
  - Therapy cessation [None]
  - Diarrhoea [None]

NARRATIVE: CASE EVENT DATE: 201501
